FAERS Safety Report 25399517 (Version 1)
Quarter: 2025Q2

REPORT INFORMATION
  Report Type: Spontaneous
  Country: RS (occurrence: RS)
  Receive Date: 20250605
  Receipt Date: 20250605
  Transmission Date: 20250717
  Serious: Yes (Other)
  Sender: NOVARTIS
  Company Number: RS-002147023-NVSC2025RS086690

PATIENT
  Age: 19 Year
  Sex: Female
  Weight: 110 kg

DRUGS (9)
  1. NILOTINIB [Suspect]
     Active Substance: NILOTINIB
     Indication: Chronic myeloid leukaemia
     Dosage: 800 MG, QD (/DAY)
     Route: 065
     Dates: start: 201812
  2. NILOTINIB [Suspect]
     Active Substance: NILOTINIB
     Dosage: 600 MG, QD (DOSE WAS REDUCED)
     Route: 065
     Dates: start: 201902
  3. NILOTINIB [Suspect]
     Active Substance: NILOTINIB
     Dosage: 600 MG, QD
     Route: 065
     Dates: start: 201905
  4. NILOTINIB [Suspect]
     Active Substance: NILOTINIB
     Dosage: 400 MG, QD
     Route: 065
     Dates: start: 202203
  5. NILOTINIB [Suspect]
     Active Substance: NILOTINIB
     Dosage: 600 MG, QD
     Route: 065
     Dates: start: 202205
  6. NILOTINIB [Suspect]
     Active Substance: NILOTINIB
     Dosage: 600 MG, QD
     Route: 065
     Dates: start: 202207
  7. NILOTINIB [Suspect]
     Active Substance: NILOTINIB
     Dosage: 800 MG, QD
     Route: 065
     Dates: start: 202208
  8. NILOTINIB [Suspect]
     Active Substance: NILOTINIB
     Dosage: 800 MG, QD
     Route: 065
     Dates: start: 202210
  9. IMATINIB [Suspect]
     Active Substance: IMATINIB
     Indication: Chronic myeloid leukaemia
     Dosage: 400 MG, QD (/DAY)
     Route: 065
     Dates: start: 2017

REACTIONS (7)
  - Type 2 diabetes mellitus [Unknown]
  - Transaminases increased [Recovering/Resolving]
  - Hyperglycaemia [Unknown]
  - Dyslipidaemia [Unknown]
  - Hepatic steatosis [Unknown]
  - Weight increased [Unknown]
  - Weight fluctuation [Unknown]
